FAERS Safety Report 6744234-X (Version None)
Quarter: 2010Q2

REPORT INFORMATION
  Report Type: 
  Country: None (occurrence: None)
  Receive Date: 20100525
  Receipt Date: 20100511
  Transmission Date: 20101027
  Serious: Yes (Death)
  Sender: FDA-Public Use
  Company Number: 009155

PATIENT
  Age: 56 Year
  Sex: Male

DRUGS (7)
  1. BUSULFEX [Suspect]
     Indication: STEM CELL TRANSPLANT
     Dosage: 42 MG, DAILY DOSE, INTRAVENOUS
     Route: 042
     Dates: start: 20080227, end: 20080228
  2. FLUDARABINE PHOSPHATE [Suspect]
     Indication: STEM CELL TRANSPLANT
     Dosage: 45 MG, DAILY DOSE, INTRAVENOUS
     Route: 042
     Dates: start: 20080226, end: 20080302
  3. TACROLIMUS [Suspect]
     Indication: PROPHYLAXIS
     Dosage: 1.6 MG, DAILY DOSE, INTRAVENOUS
     Route: 042
     Dates: start: 20080304
  4. METHOTREXATE [Suspect]
     Indication: PROPHYLAXIS
     Dosage: 1.5 MG, DAILY DOSE, INTRAVENOUS; 10 MG, DAILY DOSE, INTRAVENOUS
     Route: 042
     Dates: start: 20080306, end: 20080306
  5. METHOTREXATE [Suspect]
     Indication: PROPHYLAXIS
     Dosage: 1.5 MG, DAILY DOSE, INTRAVENOUS; 10 MG, DAILY DOSE, INTRAVENOUS
     Route: 042
     Dates: start: 20080308, end: 20080308
  6. METHOTREXATE [Suspect]
     Indication: PROPHYLAXIS
     Dosage: 1.5 MG, DAILY DOSE, INTRAVENOUS; 10 MG, DAILY DOSE, INTRAVENOUS
     Route: 042
     Dates: start: 20080311, end: 20080311
  7. DEPAKENE [Concomitant]

REACTIONS (9)
  - ASPERGILLUS TEST [None]
  - BONE MARROW FAILURE [None]
  - BRAIN STEM INFARCTION [None]
  - CEREBRAL INFARCTION [None]
  - CYTOMEGALOVIRUS TEST POSITIVE [None]
  - LOBAR PNEUMONIA [None]
  - MYOCARDIAL INFARCTION [None]
  - PSEUDOMONAS INFECTION [None]
  - SPUTUM CULTURE POSITIVE [None]
